FAERS Safety Report 17727991 (Version 1)
Quarter: 2020Q2

REPORT INFORMATION
  Report Type: Spontaneous
  Country: US (occurrence: US)
  Receive Date: 20200430
  Receipt Date: 20200430
  Transmission Date: 20200714
  Serious: Yes (Other)
  Sender: FDA-Public Use
  Company Number: US-GW PHARMA-202004USGW01571

PATIENT

DRUGS (3)
  1. EPIDIOLEX [Suspect]
     Active Substance: CANNABIDIOL
     Indication: PRODUCT USED FOR UNKNOWN INDICATION
     Dosage: 250 MILLIGRAM, QD
     Dates: start: 201903
  2. RUFINAMIDE [Interacting]
     Active Substance: RUFINAMIDE
     Indication: PRODUCT USED FOR UNKNOWN INDICATION
     Dosage: UNK
     Route: 065
  3. RUFINAMIDE [Interacting]
     Active Substance: RUFINAMIDE
     Dosage: UNK, DOSE DECREASED
     Route: 065

REACTIONS (3)
  - Incorrect route of product administration [Not Recovered/Not Resolved]
  - Drug interaction [Unknown]
  - Seizure [Unknown]

NARRATIVE: CASE EVENT DATE: 201903
